FAERS Safety Report 15295764 (Version 3)
Quarter: 2018Q3

REPORT INFORMATION
  Report Type: Report from Study
  Country: CA (occurrence: CA)
  Receive Date: 20180820
  Receipt Date: 20180927
  Transmission Date: 20181010
  Serious: Yes (Other)
  Sender: FDA-Public Use
  Company Number: CA-BRISTOL-MYERS SQUIBB COMPANY-BMS-2018-006723

PATIENT
  Age: 67 Year
  Sex: Female

DRUGS (1)
  1. ABATACEPT [Suspect]
     Active Substance: ABATACEPT
     Indication: RHEUMATOID ARTHRITIS
     Dosage: 750 MG, Q4WK
     Route: 042
     Dates: start: 20170708

REACTIONS (16)
  - Muscle spasms [Unknown]
  - Pain in extremity [Unknown]
  - Inflammation [Recovering/Resolving]
  - Fall [Unknown]
  - Oedema [Recovered/Resolved]
  - Secretion discharge [Recovered/Resolved]
  - Mobility decreased [Recovering/Resolving]
  - Bone pain [Recovering/Resolving]
  - Back pain [Unknown]
  - Thrombosis [Unknown]
  - Hypertension [Unknown]
  - Nasopharyngitis [Recovered/Resolved]
  - Pyrexia [Recovered/Resolved]
  - Cough [Recovered/Resolved]
  - Dyspnoea [Unknown]
  - Gait disturbance [Recovering/Resolving]

NARRATIVE: CASE EVENT DATE: 20180228
